FAERS Safety Report 17921040 (Version 1)
Quarter: 2020Q2

REPORT INFORMATION
  Report Type: Spontaneous
  Country: DE (occurrence: DE)
  Receive Date: 20200622
  Receipt Date: 20200622
  Transmission Date: 20200714
  Serious: Yes (Hospitalization)
  Sender: FDA-Public Use
  Company Number: DE-TEVA-2020-DE-1788749

PATIENT
  Age: 69 Year
  Sex: Male

DRUGS (8)
  1. SALBUTAMOL [Concomitant]
     Active Substance: ALBUTEROL
     Dosage: NK MG, IF NECESSARY, MDI
     Route: 055
  2. MONTELUKAST [Concomitant]
     Active Substance: MONTELUKAST SODIUM
     Dosage: 10 MILLIGRAM DAILY;  0-0-1-0
     Route: 048
  3. SPIRIVA RESPIMAT 1,25MIKROGRAMM [Concomitant]
     Dosage: 2 DOSAGE FORMS DAILY; 1.25 MICROGRAMS, 0-2-0-0, MDI
     Route: 055
  4. DEKRISTOLMIN 20000I.E. [Concomitant]
     Dosage: 20,000 IU / WEEK, 1-0-0-0
     Route: 048
  5. PANTOPRAZOL [Concomitant]
     Active Substance: PANTOPRAZOLE SODIUM
     Dosage: 40 MILLIGRAM DAILY;  1-0-0-0
     Route: 048
  6. VIANI FORTE 25MICROGRAM/250MICROGRAM [Concomitant]
     Dosage: 4 DOSAGE FORMS DAILY; 250 | 25 MICROGRAMS, 2-0-2-0, MDI
     Route: 055
  7. SOLEDUM KAPSELN FORTE 200MG [Concomitant]
     Dosage: 600 MILLIGRAM DAILY;  1-1-1-0
     Route: 048
  8. PREDNISOLON [Suspect]
     Active Substance: PREDNISOLONE
     Dosage: 7.5 MILLIGRAM DAILY;  1-0-0-0
     Route: 048

REACTIONS (1)
  - Pulmonary embolism [Unknown]

NARRATIVE: CASE EVENT DATE: 20200428
